FAERS Safety Report 20417354 (Version 2)
Quarter: 2022Q1

REPORT INFORMATION
  Report Type: Spontaneous
  Country: JP (occurrence: JP)
  Receive Date: 20220202
  Receipt Date: 20220221
  Transmission Date: 20220423
  Serious: No
  Sender: FDA-Public Use
  Company Number: JP-GSKNCCC-Case-01406118_AE-54177

PATIENT
  Age: 91 Year
  Sex: Female

DRUGS (37)
  1. SOTROVIMAB [Suspect]
     Active Substance: SOTROVIMAB
     Indication: COVID-19
     Dosage: 500 MG/100 ML/30 MIN
     Dates: start: 20220125, end: 20220125
  2. TELMISARTAN [Concomitant]
     Active Substance: TELMISARTAN
     Indication: Fracture pain
     Dosage: 40 MG, QD, AFTER BREAKFAST
  3. TELMISARTAN [Concomitant]
     Active Substance: TELMISARTAN
     Indication: Hypertension
  4. TELMISARTAN [Concomitant]
     Active Substance: TELMISARTAN
     Indication: Cerebral disorder
  5. BAYASPIRIN TABLETS [Concomitant]
     Indication: Fracture pain
     Dosage: 100 MG, QD, AFTER BREAKFAST
  6. BAYASPIRIN TABLETS [Concomitant]
     Indication: Hypertension
  7. BAYASPIRIN TABLETS [Concomitant]
     Indication: Cerebral disorder
  8. NEXIUM [Concomitant]
     Active Substance: ESOMEPRAZOLE MAGNESIUM
     Indication: Fracture pain
     Dosage: 20 MG, QD, AFTER BREAKFAST
  9. NEXIUM [Concomitant]
     Active Substance: ESOMEPRAZOLE MAGNESIUM
     Indication: Hypertension
  10. NEXIUM [Concomitant]
     Active Substance: ESOMEPRAZOLE MAGNESIUM
     Indication: Cerebral disorder
  11. DONEPEZIL HYDROCHLORIDE [Concomitant]
     Active Substance: DONEPEZIL HYDROCHLORIDE
     Indication: Fracture pain
     Dosage: 5 MG, QD, AFTER BREAKFAST
  12. DONEPEZIL HYDROCHLORIDE [Concomitant]
     Active Substance: DONEPEZIL HYDROCHLORIDE
     Indication: Hypertension
  13. DONEPEZIL HYDROCHLORIDE [Concomitant]
     Active Substance: DONEPEZIL HYDROCHLORIDE
     Indication: Cerebral disorder
  14. ASPARA-CA TABLETS [Concomitant]
     Indication: Fracture pain
     Dosage: 200 MG, TID, AFTER EVERY MEAL
  15. ASPARA-CA TABLETS [Concomitant]
     Indication: Hypertension
  16. ASPARA-CA TABLETS [Concomitant]
     Indication: Cerebral disorder
  17. PRAVASTATIN SODIUM [Concomitant]
     Active Substance: PRAVASTATIN SODIUM
     Indication: Fracture pain
     Dosage: 10 MG, QD, AFTER DINNER
  18. PRAVASTATIN SODIUM [Concomitant]
     Active Substance: PRAVASTATIN SODIUM
     Indication: Hypertension
  19. PRAVASTATIN SODIUM [Concomitant]
     Active Substance: PRAVASTATIN SODIUM
     Indication: Cerebral disorder
  20. BETANIS TABLETS [Concomitant]
     Indication: Fracture pain
     Dosage: 50 MG, QD, AFTER DINNER
  21. BETANIS TABLETS [Concomitant]
     Indication: Hypertension
  22. BETANIS TABLETS [Concomitant]
     Indication: Cerebral disorder
  23. MAGNESIUM OXIDE [Concomitant]
     Active Substance: MAGNESIUM OXIDE
     Indication: Fracture pain
     Dosage: 330 MG, BID, AFTER BREAKFAST AND DINNER
  24. MAGNESIUM OXIDE [Concomitant]
     Active Substance: MAGNESIUM OXIDE
     Indication: Hypertension
  25. MAGNESIUM OXIDE [Concomitant]
     Active Substance: MAGNESIUM OXIDE
     Indication: Cerebral disorder
  26. BROTIZOLAM [Concomitant]
     Active Substance: BROTIZOLAM
     Indication: Fracture pain
     Dosage: 0.25 MG, QD, BEFORE BEDTIME
  27. BROTIZOLAM [Concomitant]
     Active Substance: BROTIZOLAM
     Indication: Hypertension
  28. BROTIZOLAM [Concomitant]
     Active Substance: BROTIZOLAM
     Indication: Cerebral disorder
  29. BELSOMRA [Concomitant]
     Active Substance: SUVOREXANT
     Indication: Fracture pain
     Dosage: 15 MG, QD, BEFORE BEDTIME
  30. BELSOMRA [Concomitant]
     Active Substance: SUVOREXANT
     Indication: Hypertension
  31. BELSOMRA [Concomitant]
     Active Substance: SUVOREXANT
     Indication: Cerebral disorder
  32. LOXOPROFEN SODIUM DIHYDRATE [Concomitant]
     Active Substance: LOXOPROFEN SODIUM DIHYDRATE
     Indication: Fracture pain
     Dosage: 60 MG, TID, AFTER EVERY MEAL
  33. LOXOPROFEN SODIUM DIHYDRATE [Concomitant]
     Active Substance: LOXOPROFEN SODIUM DIHYDRATE
     Indication: Hypertension
  34. LOXOPROFEN SODIUM DIHYDRATE [Concomitant]
     Active Substance: LOXOPROFEN SODIUM DIHYDRATE
     Indication: Cerebral disorder
  35. REBAMIPIDE TABLETS [Concomitant]
     Indication: Fracture pain
     Dosage: 100 MG, TID, AFTER EVERY MEAL
  36. REBAMIPIDE TABLETS [Concomitant]
     Indication: Hypertension
  37. REBAMIPIDE TABLETS [Concomitant]
     Indication: Cerebral disorder

REACTIONS (3)
  - Pruritus [Recovering/Resolving]
  - Erythema [Recovering/Resolving]
  - Drug eruption [Recovering/Resolving]

NARRATIVE: CASE EVENT DATE: 20220125
